FAERS Safety Report 5311681-2 (Version None)
Quarter: 2007Q2

REPORT INFORMATION
  Report Type: 
  Country: None (occurrence: None)
  Receive Date: 20070430
  Receipt Date: 20060724
  Transmission Date: 20071010
  Serious: No
  Sender: FDA-Public Use
  Company Number: 2006UW14955

PATIENT
  Age: 20 Year
  Sex: Male

DRUGS (7)
  1. ZOMIG [Suspect]
     Indication: ARNOLD-CHIARI MALFORMATION
     Route: 045
  2. ZOMIG [Suspect]
     Indication: ANORECTAL DISORDER
     Route: 045
  3. ZOMIG [Suspect]
     Indication: EHLERS-DANLOS SYNDROME
     Route: 045
  4. XANAX [Concomitant]
  5. FENTANYL LOZENGES [Concomitant]
  6. DURAGESIC-100 [Concomitant]
  7. WELLBUTRIN [Concomitant]

REACTIONS (1)
  - INJURY [None]
